FAERS Safety Report 6147272-3 (Version None)
Quarter: 2009Q2

REPORT INFORMATION
  Report Type: 
  Country: None (occurrence: None)
  Receive Date: 20090408
  Receipt Date: 20090403
  Transmission Date: 20091009
  Serious: Yes (Hospitalization, Other)
  Sender: FDA-Public Use
  Company Number: JP-JNJFOC-20090307642

PATIENT
  Age: 60 Year
  Sex: Male

DRUGS (1)
  1. ITRIZOLE [Suspect]
     Indication: TINEA INFECTION
     Route: 048

REACTIONS (1)
  - EOSINOPHILIC PNEUMONIA ACUTE [None]
